FAERS Safety Report 4949061-1 (Version None)
Quarter: 2006Q1

REPORT INFORMATION
  Report Type: 
  Country: None (occurrence: None)
  Receive Date: 20060321
  Receipt Date: 20060314
  Transmission Date: 20060701
  Serious: Yes (Hospitalization)
  Sender: FDA-Public Use
  Company Number: SE-GLAXOSMITHKLINE-B0416481A

PATIENT
  Sex: Male

DRUGS (3)
  1. SEROXAT [Suspect]
     Indication: DRUG USE FOR UNKNOWN INDICATION
     Dosage: 30MG UNKNOWN
     Route: 065
  2. CIPRAMIL [Concomitant]
     Indication: DRUG USE FOR UNKNOWN INDICATION
     Route: 065
  3. PAINKILLER (UNKNOWN) [Concomitant]
     Indication: DRUG USE FOR UNKNOWN INDICATION
     Route: 065

REACTIONS (11)
  - ARTHRALGIA [None]
  - DECREASED APPETITE [None]
  - DYSPNOEA [None]
  - EAR DISCOMFORT [None]
  - HEPATITIS [None]
  - JAUNDICE [None]
  - LIVER TENDERNESS [None]
  - MALAISE [None]
  - MYALGIA [None]
  - NAUSEA [None]
  - PYREXIA [None]
